FAERS Safety Report 4713713-9 (Version None)
Quarter: 2005Q3

REPORT INFORMATION
  Report Type: 
  Country: None (occurrence: None)
  Receive Date: 20050713
  Receipt Date: 20050623
  Transmission Date: 20060218
  Serious: Yes (Other)
  Sender: FDA-Public Use
  Company Number: USA050394029

PATIENT
  Age: 57 Year
  Sex: Female

DRUGS (3)
  1. FORTEO [Suspect]
     Indication: OSTEOPOROSIS
     Dates: start: 20050324
  2. EVISTA [Suspect]
     Dosage: 60 MG DAY
  3. CALCIUM W/VITAMIN D NOS [Concomitant]

REACTIONS (5)
  - BONE DENSITY DECREASED [None]
  - BREAST DISORDER [None]
  - DIZZINESS [None]
  - INJECTION SITE ERYTHEMA [None]
  - PHARMACEUTICAL PRODUCT COMPLAINT [None]
